FAERS Safety Report 11587435 (Version 3)
Quarter: 2015Q4

REPORT INFORMATION
  Report Type: Spontaneous
  Country: BR (occurrence: BR)
  Receive Date: 20151001
  Receipt Date: 20151102
  Transmission Date: 20160304
  Serious: Yes (Other)
  Sender: FDA-Public Use
  Company Number: PHHY2015BR118255

PATIENT
  Sex: Female
  Weight: 110 kg

DRUGS (1)
  1. DIOVAN TRIPLE [Suspect]
     Active Substance: AMLODIPINE BESYLATE\HYDROCHLOROTHIAZIDE\VALSARTAN
     Indication: HYPERTENSION
     Dosage: 1 DF, QD IN THE MORNING
     Route: 048

REACTIONS (4)
  - Nervousness [Recovered/Resolved]
  - Gun shot wound [Recovered/Resolved]
  - Nausea [Recovered/Resolved]
  - Limb injury [Recovered/Resolved]
